FAERS Safety Report 24818936 (Version 1)
Quarter: 2025Q1

REPORT INFORMATION
  Report Type: Spontaneous
  Country: US (occurrence: None)
  Receive Date: 20250107
  Receipt Date: 20250107
  Transmission Date: 20250408
  Serious: Yes (Disabling)
  Sender: FDA-CTU
  Company Number: None

PATIENT
  Age: 62 Year
  Sex: Female
  Weight: 65.25 kg

DRUGS (8)
  1. PAXLOVID [Suspect]
     Active Substance: NIRMATRELVIR\RITONAVIR
     Indication: COVID-19
     Dosage: OTHER QUANTITY : 30 TABLET(S);?FREQUENCY : TWICE A DAY;?
     Route: 048
     Dates: start: 20250103, end: 20250104
  2. NATURE-THROID [Concomitant]
     Active Substance: THYROID, PORCINE
  3. PROGESTERONE [Concomitant]
     Active Substance: PROGESTERONE
  4. FISH OIL [Concomitant]
     Active Substance: FISH OIL
  5. VITAMIN D3 [Concomitant]
     Active Substance: CHOLECALCIFEROL
  6. C [Concomitant]
  7. ZINC [Concomitant]
     Active Substance: ZINC
  8. multivitamins for women [Concomitant]

REACTIONS (17)
  - Dysgeusia [None]
  - Pain [None]
  - Flatulence [None]
  - Headache [None]
  - Nausea [None]
  - Dysphonia [None]
  - Chest discomfort [None]
  - Throat tightness [None]
  - Dyspnoea [None]
  - Dysphagia [None]
  - Mouth swelling [None]
  - Chromaturia [None]
  - Faeces pale [None]
  - Decreased appetite [None]
  - Dizziness [None]
  - Visual impairment [None]
  - Eye irritation [None]

NARRATIVE: CASE EVENT DATE: 20250103
